FAERS Safety Report 9983171 (Version 6)
Quarter: 2014Q3

REPORT INFORMATION
  Report Type: Report from Study
  Country: KR (occurrence: KR)
  Receive Date: 20140307
  Receipt Date: 20140725
  Transmission Date: 20150326
  Serious: Yes (Hospitalization)
  Sender: FDA-Public Use
  Company Number: KR-009507513-1402KOR013573

PATIENT
  Age: 60 Year
  Sex: Female

DRUGS (8)
  1. PEGINTRON [Suspect]
     Active Substance: PEGINTERFERON ALFA-2B
     Indication: HEPATITIS C
     Dosage: 80 MICROGRAM PER WEEK
     Route: 058
     Dates: start: 20131211, end: 20140326
  2. VIRAMID [Suspect]
     Active Substance: RIBAVIRIN
     Dosage: STRENGTH 200 MG,FREQUENCY BID, TOTAL DAILY DOSE 600MG
     Route: 048
     Dates: start: 20140326, end: 20140401
  3. PEGINTRON [Suspect]
     Active Substance: PEGINTERFERON ALFA-2B
     Dosage: 54 MICROGRAM PER WEEK
     Route: 058
     Dates: start: 20140618
  4. VIRAMID [Suspect]
     Active Substance: RIBAVIRIN
     Dosage: STRENGTH 200 MG,FREQUENCY BID, TOTAL DAILY DOSAGE: 400 MG
     Route: 048
     Dates: start: 20140402, end: 20140604
  5. PEGINTRON [Suspect]
     Active Substance: PEGINTERFERON ALFA-2B
     Dosage: 54 MICROGRAM PER WEEK
     Route: 058
     Dates: start: 20140402, end: 20140605
  6. VIRAMID [Suspect]
     Active Substance: RIBAVIRIN
     Dosage: 200 MG, QD
     Route: 048
     Dates: start: 20140610
  7. BOCEPREVIR [Suspect]
     Active Substance: BOCEPREVIR
     Indication: HEPATITIS C
     Dosage: 2400 MG, TID
     Route: 048
     Dates: start: 20140108
  8. VIRAMID [Suspect]
     Active Substance: RIBAVIRIN
     Indication: HEPATITIS C
     Dosage: STRENGTH 200 MG,FREQUENCY BID, TOTAL DAILY DOSE: 800 MG
     Route: 048
     Dates: start: 20131211, end: 20140325

REACTIONS (2)
  - Lethargy [Recovered/Resolved]
  - Lethargy [Recovering/Resolving]

NARRATIVE: CASE EVENT DATE: 20140226
